FAERS Safety Report 9709104 (Version 3)
Quarter: 2013Q4

REPORT INFORMATION
  Report Type: Spontaneous
  Country: US (occurrence: US)
  Receive Date: 20131125
  Receipt Date: 20131219
  Transmission Date: 20140711
  Serious: Yes (Other)
  Sender: FDA-Public Use
  Company Number: US-009507513-1311USA010619

PATIENT
  Age: 73 Year
  Sex: Female
  Weight: 68.27 kg

DRUGS (1)
  1. OXYTROL FOR WOMEN [Suspect]
     Indication: PRODUCT USED FOR UNKNOWN INDICATION
     Dosage: 1 DF, Q3D
     Route: 062
     Dates: start: 20131030

REACTIONS (3)
  - Pancreatic disorder [Unknown]
  - Inappropriate schedule of drug administration [Unknown]
  - Drug effect decreased [Unknown]
